FAERS Safety Report 9269417 (Version 1)
Quarter: 2013Q2

REPORT INFORMATION
  Report Type: Spontaneous
  Country: US (occurrence: US)
  Receive Date: 20130503
  Receipt Date: 20130503
  Transmission Date: 20140414
  Serious: Yes (Hospitalization)
  Sender: FDA-Public Use
  Company Number: US-BAYER-2013-052553

PATIENT
  Age: 26 Year
  Sex: Female

DRUGS (8)
  1. OCELLA [Suspect]
  2. THORAZINE [Concomitant]
  3. CHLORPROMAZINE [Concomitant]
     Dosage: 200 MG, DAILY
     Route: 048
  4. GABAPENTIN [Concomitant]
     Dosage: 600 MG, THREE TIMES A DAY
     Route: 048
  5. LITHIUM [Concomitant]
     Dosage: 450 MG, TWICW DAILY
     Route: 048
  6. PERCOCET [Concomitant]
     Dosage: 10/325 MG, TWICE DAILY
  7. XANAX [Concomitant]
     Dosage: 1MG 4 TIMES A DAY
     Route: 048
  8. FENTANYL [Concomitant]
     Dosage: 100 MCG
     Route: 062

REACTIONS (2)
  - Deep vein thrombosis [None]
  - Pulmonary embolism [None]
